FAERS Safety Report 9853639 (Version 2)
Quarter: 2014Q1

REPORT INFORMATION
  Report Type: Spontaneous
  Country: US (occurrence: US)
  Receive Date: 20140129
  Receipt Date: 20140130
  Transmission Date: 20141002
  Serious: No
  Sender: FDA-Public Use
  Company Number: US-009507513-1401USA013716

PATIENT
  Sex: Female
  Weight: 86.17 kg

DRUGS (16)
  1. ZEGERID OTC CAPSULES [Suspect]
     Indication: COLITIS ULCERATIVE
     Dosage: UNK, BID
     Route: 048
     Dates: start: 2010
  2. ZEGERID OTC CAPSULES [Suspect]
     Indication: IRRITABLE BOWEL SYNDROME
  3. PLAQUENIL [Concomitant]
     Indication: SYSTEMIC LUPUS ERYTHEMATOSUS
     Dosage: UNK, UNKNOWN
  4. PLAQUENIL [Concomitant]
     Indication: ARTHRITIS
  5. PREDNISONE [Concomitant]
     Indication: SYSTEMIC LUPUS ERYTHEMATOSUS
     Dosage: UNK, UNKNOWN
  6. PREDNISONE [Concomitant]
     Indication: ARTHRITIS
  7. AMITRIPTYLINE HYDROCHLORIDE [Concomitant]
     Indication: PRODUCT USED FOR UNKNOWN INDICATION
     Dosage: UNK, UNKNOWN
  8. XARELTO [Concomitant]
     Indication: THROMBOSIS
     Dosage: UNK, UNKNOWN
  9. SYNTHROID [Concomitant]
     Indication: THYROID DISORDER
     Dosage: UNK, UNKNOWN
  10. ROPINIROLE [Concomitant]
     Indication: PRODUCT USED FOR UNKNOWN INDICATION
     Dosage: UNK, UNKNOWN
  11. COLESTID [Concomitant]
     Indication: PRODUCT USED FOR UNKNOWN INDICATION
     Dosage: UNK, UNKNOWN
  12. LEVSIN [Concomitant]
     Indication: COLITIS ULCERATIVE
     Dosage: UNK, UNKNOWN
  13. LEVSIN [Concomitant]
     Indication: IRRITABLE BOWEL SYNDROME
  14. DITROPAN [Concomitant]
     Indication: BLADDER PROLAPSE
     Dosage: UNK, UNKNOWN
  15. PERCOCET [Concomitant]
     Indication: FIBROMYALGIA
     Dosage: UNK, UNKNOWN
  16. TYLENOL [Concomitant]
     Indication: FIBROMYALGIA
     Dosage: UNK, UNKNOWN

REACTIONS (4)
  - Prescribed overdose [Unknown]
  - Inappropriate schedule of drug administration [Unknown]
  - Incorrect drug administration duration [Unknown]
  - Off label use [Unknown]
